FAERS Safety Report 10566336 (Version 1)
Quarter: 2014Q4

REPORT INFORMATION
  Report Type: Spontaneous
  Country: US (occurrence: US)
  Receive Date: 20141105
  Receipt Date: 20141105
  Transmission Date: 20150529
  Serious: No
  Sender: FDA-Public Use
  Company Number: US-B.I. PHARMACEUTICALS,INC./RIDGEFIELD-2014-BI-51425BP

PATIENT
  Age: 66 Year
  Sex: Male
  Weight: 81.19 kg

DRUGS (1)
  1. ATROVENT [Suspect]
     Active Substance: IPRATROPIUM BROMIDE
     Indication: CHRONIC OBSTRUCTIVE PULMONARY DISEASE
     Dosage: 136 MCG
     Route: 055
     Dates: start: 2011

REACTIONS (8)
  - Dyspnoea [Not Recovered/Not Resolved]
  - Road traffic accident [Recovered/Resolved]
  - Limb deformity [Not Recovered/Not Resolved]
  - Contusion [Not Recovered/Not Resolved]
  - Thermal burn [Not Recovered/Not Resolved]
  - Disability [Not Recovered/Not Resolved]
  - Spinal fracture [Not Recovered/Not Resolved]
  - Laceration [Not Recovered/Not Resolved]

NARRATIVE: CASE EVENT DATE: 201304
